FAERS Safety Report 4729833-9 (Version None)
Quarter: 2005Q3

REPORT INFORMATION
  Report Type: 
  Country: None (occurrence: None)
  Receive Date: 20050801
  Receipt Date: 20050308
  Transmission Date: 20060218
  Serious: Yes (Hospitalization)
  Sender: FDA-Public Use
  Company Number: US-MERCK-0503USA01433

PATIENT
  Age: 64 Year
  Sex: Male
  Weight: 100 kg

DRUGS (12)
  1. VIOXX [Suspect]
     Indication: BACK PAIN
     Route: 048
     Dates: start: 20010301, end: 20031201
  2. VIOXX [Suspect]
     Route: 048
     Dates: start: 20010301, end: 20031201
  3. VIOXX [Suspect]
     Indication: SHOULDER PAIN
     Route: 048
     Dates: start: 20010301, end: 20031201
  4. VIOXX [Suspect]
     Route: 048
     Dates: start: 20010301, end: 20031201
  5. ZOCOR [Concomitant]
     Indication: HYPERLIPIDAEMIA
     Route: 048
  6. PLAVIX [Concomitant]
     Route: 065
  7. VIAGRA [Concomitant]
     Route: 065
  8. CEPHALEXIN [Concomitant]
     Route: 065
  9. DEXTROSE [Concomitant]
     Route: 065
  10. LIPITOR [Concomitant]
     Indication: HYPERCHOLESTEROLAEMIA
     Route: 065
  11. ZESTORETIC [Concomitant]
     Indication: HYPERTENSION
     Route: 048
  12. ASPIRIN [Concomitant]
     Route: 065
     Dates: start: 19850101

REACTIONS (4)
  - ACUTE MYOCARDIAL INFARCTION [None]
  - ARTHROPATHY [None]
  - BRADYCARDIA [None]
  - CORONARY ARTERY DISEASE [None]
